FAERS Safety Report 22341119 (Version 3)
Quarter: 2023Q2

REPORT INFORMATION
  Report Type: Report from Study
  Country: AU (occurrence: AU)
  Receive Date: 20230518
  Receipt Date: 20230608
  Transmission Date: 20230722
  Serious: Yes (Hospitalization)
  Sender: FDA-Public Use
  Company Number: AU-JNJFOC-20230517760

PATIENT
  Age: 47 Year
  Sex: Male
  Weight: 79.2 kg

DRUGS (23)
  1. TECLISTAMAB [Suspect]
     Active Substance: TECLISTAMAB
     Indication: Plasma cell myeloma
     Route: 058
     Dates: start: 20220225, end: 20230119
  2. DARATUMUMAB [Concomitant]
     Active Substance: DARATUMUMAB
     Indication: Plasma cell myeloma
     Route: 058
     Dates: start: 20220224, end: 20220920
  3. LENALIDOMIDE [Concomitant]
     Active Substance: LENALIDOMIDE
     Indication: Plasma cell myeloma
     Route: 048
     Dates: start: 20220324, end: 20221005
  4. LENALIDOMIDE [Concomitant]
     Active Substance: LENALIDOMIDE
     Route: 048
     Dates: start: 20221006, end: 20221010
  5. CALCIUM PHOSPHATE [Concomitant]
     Active Substance: CALCIUM PHOSPHATE
     Indication: Bone lesion
     Route: 048
     Dates: start: 20220827
  6. MAGNESIUM [Concomitant]
     Active Substance: MAGNESIUM
     Indication: Prophylaxis
     Route: 048
     Dates: start: 20190101
  7. ZOLEDRONIC ACID [Concomitant]
     Active Substance: ZOLEDRONIC ACID
     Indication: Osteolysis
     Route: 042
     Dates: start: 20190101
  8. TEMAZEPAM [Concomitant]
     Active Substance: TEMAZEPAM
     Indication: Insomnia
     Route: 048
     Dates: start: 20220101
  9. NALOXONE HYDROCHLORIDE\OXYCODONE HYDROCHLORIDE [Concomitant]
     Active Substance: NALOXONE HYDROCHLORIDE\OXYCODONE HYDROCHLORIDE
     Indication: Osteolysis
     Route: 048
     Dates: start: 20220208
  10. VALACYCLOVIR HYDROCHLORIDE [Concomitant]
     Active Substance: VALACYCLOVIR HYDROCHLORIDE
     Indication: Antiviral prophylaxis
     Route: 048
     Dates: start: 20220208
  11. PANTOPRAZOLE [Concomitant]
     Active Substance: PANTOPRAZOLE
     Indication: Gastrointestinal disorder therapy
     Route: 048
     Dates: start: 20220226
  12. BETAMETHASONE [Concomitant]
     Active Substance: BETAMETHASONE
     Indication: Urticaria
     Route: 061
     Dates: start: 20220311
  13. LORATADINE [Concomitant]
     Active Substance: LORATADINE
     Indication: Urticaria
     Route: 048
     Dates: start: 20220311
  14. AMPHOTERICIN B [Concomitant]
     Active Substance: AMPHOTERICIN B
     Indication: Dysphagia
     Route: 048
     Dates: start: 20220407
  15. ERGOCALCIFEROL [Concomitant]
     Active Substance: ERGOCALCIFEROL
     Indication: Prophylaxis
     Route: 048
     Dates: start: 20220826
  16. URSODIOL [Concomitant]
     Active Substance: URSODIOL
     Indication: Drug-induced liver injury
     Route: 048
     Dates: start: 20221020
  17. TEMAZEPAM [Concomitant]
     Active Substance: TEMAZEPAM
     Indication: Insomnia
     Route: 048
     Dates: start: 20220101
  18. DAPSONE [Concomitant]
     Active Substance: DAPSONE
     Indication: Antifungal prophylaxis
     Route: 048
     Dates: start: 20230510
  19. METHYL SALICYLATE\PEPPERMINT OIL\SODIUM BICARBONATE\SODIUM CHLORIDE [Concomitant]
     Active Substance: METHYL SALICYLATE\PEPPERMINT OIL\SODIUM BICARBONATE\SODIUM CHLORIDE
     Indication: Oropharyngeal pain
     Route: 048
     Dates: start: 20220801
  20. INTRAGAM P [Concomitant]
     Active Substance: HUMAN IMMUNOGLOBULIN G
     Indication: Prophylaxis
     Route: 042
     Dates: start: 20220616
  21. SUSTAGEN [Concomitant]
     Indication: Decreased appetite
     Route: 048
     Dates: start: 20221222
  22. POLYETHYLENE GLYCOLS [Concomitant]
     Active Substance: POLYETHYLENE GLYCOLS
     Indication: Constipation prophylaxis
     Route: 048
     Dates: start: 20220726
  23. DOCUSATE SODIUM\SENNOSIDES A AND B [Concomitant]
     Active Substance: DOCUSATE SODIUM\SENNOSIDES A AND B
     Indication: Constipation
     Route: 048
     Dates: start: 20220726

REACTIONS (1)
  - Immune-mediated hepatitis [Recovered/Resolved]

NARRATIVE: CASE EVENT DATE: 20230505
